FAERS Safety Report 17627223 (Version 1)
Quarter: 2020Q2

REPORT INFORMATION
  Report Type: Spontaneous
  Country: US (occurrence: US)
  Receive Date: 20200405
  Receipt Date: 20200405
  Transmission Date: 20200713
  Serious: No
  Sender: FDA-Public Use
  Company Number: US-ZYDUS-039586

PATIENT
  Age: 51 Year
  Sex: Female

DRUGS (1)
  1. ATENOLOL. [Suspect]
     Active Substance: ATENOLOL
     Indication: MITRAL VALVE PROLAPSE
     Route: 065
     Dates: start: 2007, end: 201904

REACTIONS (8)
  - Palpitations [Recovered/Resolved]
  - Malaise [Recovered/Resolved]
  - Product use in unapproved indication [Recovered/Resolved]
  - Nervousness [Recovered/Resolved]
  - Insomnia [Recovered/Resolved]
  - Therapeutic response unexpected [Recovered/Resolved]
  - Product size issue [Not Recovered/Not Resolved]
  - Chest pain [Recovered/Resolved]

NARRATIVE: CASE EVENT DATE: 2007
